FAERS Safety Report 21565461 (Version 15)
Quarter: 2025Q4

REPORT INFORMATION
  Report Type: Report from Study
  Country: CA (occurrence: CA)
  Receive Date: 20221108
  Receipt Date: 20251226
  Transmission Date: 20260117
  Serious: Yes (Hospitalization, Other)
  Sender: TAKEDA
  Company Number: CA-TAKEDA-2022TUS081291

PATIENT
  Age: 56 Year
  Sex: Female

DRUGS (28)
  1. VEDOLIZUMAB [Suspect]
     Active Substance: VEDOLIZUMAB
     Indication: Crohn^s disease
     Dosage: 300 MILLIGRAM
  2. VEDOLIZUMAB [Suspect]
     Active Substance: VEDOLIZUMAB
     Indication: Colitis ulcerative
     Dosage: 300 MILLIGRAM
  3. VEDOLIZUMAB [Suspect]
     Active Substance: VEDOLIZUMAB
     Dosage: 300 MILLIGRAM
  4. VEDOLIZUMAB [Suspect]
     Active Substance: VEDOLIZUMAB
     Dosage: 300 MILLIGRAM, Q4WEEKS
     Dates: start: 20230302
  5. VEDOLIZUMAB [Suspect]
     Active Substance: VEDOLIZUMAB
     Dosage: 300 MILLIGRAM, Q4WEEKS
  6. VEDOLIZUMAB [Suspect]
     Active Substance: VEDOLIZUMAB
     Dosage: 300 MILLIGRAM, Q4WEEKS
  7. VEDOLIZUMAB [Suspect]
     Active Substance: VEDOLIZUMAB
     Dosage: 300 MILLIGRAM, Q4WEEKS
  8. VEDOLIZUMAB [Suspect]
     Active Substance: VEDOLIZUMAB
     Dosage: 300 MILLIGRAM, Q4WEEKS
  9. VEDOLIZUMAB [Suspect]
     Active Substance: VEDOLIZUMAB
     Dosage: 300 MILLIGRAM, Q4WEEKS
  10. VEDOLIZUMAB [Suspect]
     Active Substance: VEDOLIZUMAB
     Dosage: 300 MILLIGRAM, Q4WEEKS
  11. VEDOLIZUMAB [Suspect]
     Active Substance: VEDOLIZUMAB
     Dosage: 300 MILLIGRAM, Q4WEEKS
  12. DESMOPRESSIN [Suspect]
     Active Substance: DESMOPRESSIN
     Indication: Product used for unknown indication
     Dosage: UNK
  13. TRYPTOPHAN [Concomitant]
     Active Substance: TRYPTOPHAN
     Dosage: UNK
  14. ESCITALOPRAM [Concomitant]
     Active Substance: ESCITALOPRAM OXALATE
     Dosage: UNK
  15. LAMOTRIGINE [Concomitant]
     Active Substance: LAMOTRIGINE
     Dosage: UNK
  16. DIAZEPAM [Concomitant]
     Active Substance: DIAZEPAM
     Dosage: UNK
  17. GABAPENTIN [Concomitant]
     Active Substance: GABAPENTIN
     Dosage: UNK
  18. MIRTAZAPINE [Concomitant]
     Active Substance: MIRTAZAPINE
     Dosage: UNK
  19. OLANZAPINE [Concomitant]
     Active Substance: OLANZAPINE
     Dosage: UNK
  20. PANTOPRAZOLE MAGNESIUM [Concomitant]
     Active Substance: PANTOPRAZOLE MAGNESIUM
     Dosage: UNK
  21. TRINTELLIX [Concomitant]
     Active Substance: VORTIOXETINE HYDROBROMIDE
     Dosage: UNK
  22. SYNTHROID [Concomitant]
     Active Substance: LEVOTHYROXINE SODIUM
     Dosage: UNK
  23. LIOTHYRONINE [Concomitant]
     Active Substance: LIOTHYRONINE
     Dosage: UNK
  24. AZATHIOPRINE [Concomitant]
     Active Substance: AZATHIOPRINE
     Dosage: UNK
  25. PREDNISONE [Concomitant]
     Active Substance: PREDNISONE
     Dosage: UNK
  26. IMURAN [Concomitant]
     Active Substance: AZATHIOPRINE
     Dosage: UNK
  27. ADALIMUMAB [Concomitant]
     Active Substance: ADALIMUMAB
     Dosage: 40 MILLIGRAM, Q2WEEKS
  28. INFLIXIMAB [Concomitant]
     Active Substance: INFLIXIMAB
     Dosage: 5 MILLIGRAM/KILOGRAM

REACTIONS (27)
  - Inflammatory bowel disease [Recovering/Resolving]
  - Hyponatraemia [Unknown]
  - Spinal osteoarthritis [Unknown]
  - Chronic fatigue syndrome [Unknown]
  - Fibromyalgia [Unknown]
  - Alopecia [Unknown]
  - Urinary incontinence [Unknown]
  - Diarrhoea [Unknown]
  - Stress [Unknown]
  - Lid sulcus deepened [Unknown]
  - Dark circles under eyes [Unknown]
  - Stomatitis [Unknown]
  - Faecal volume decreased [Unknown]
  - Abdominal discomfort [Not Recovered/Not Resolved]
  - Drug ineffective [Not Recovered/Not Resolved]
  - Visual impairment [Unknown]
  - Haemoptysis [Unknown]
  - Impaired work ability [Unknown]
  - Social problem [Unknown]
  - Atelectasis [Unknown]
  - Pulmonary mass [Unknown]
  - Blood potassium decreased [Unknown]
  - Abdominal pain [Not Recovered/Not Resolved]
  - Flatulence [Unknown]
  - Abdominal distension [Unknown]
  - Fatigue [Unknown]
  - Headache [Unknown]
